FAERS Safety Report 15234015 (Version 2)
Quarter: 2018Q3

REPORT INFORMATION
  Report Type: Spontaneous
  Country: BR (occurrence: BR)
  Receive Date: 20180802
  Receipt Date: 20180831
  Transmission Date: 20181010
  Serious: Yes (Hospitalization, Other)
  Sender: FDA-Public Use
  Company Number: BR-SA-2018SA110782

PATIENT
  Age: 44 Year
  Sex: Male

DRUGS (16)
  1. IMOVANE [Concomitant]
     Active Substance: ZOPICLONE
     Dosage: UNK UNK,QD
     Route: 048
     Dates: start: 20180313
  2. ELOXATIN [Suspect]
     Active Substance: OXALIPLATIN
     Dosage: 131 UNK
     Route: 042
     Dates: start: 20180702, end: 20180702
  3. FLUOROURACIL. [Suspect]
     Active Substance: FLUOROURACIL
     Indication: NEOPLASM
     Dosage: 3696 MG,1X
     Route: 042
     Dates: start: 20180223
  4. DEXAMETHASONE. [Concomitant]
     Active Substance: DEXAMETHASONE
     Dosage: 8 MG,QD
     Route: 042
     Dates: start: 20180223
  5. ALIZAPRIDE HYDROCHLORIDE [Concomitant]
     Active Substance: ALIZAPRIDE HYDROCHLORIDE
     Dosage: 50 MG,UNK
     Route: 065
     Dates: start: 20180313
  6. LEXOTAN [Concomitant]
     Active Substance: BROMAZEPAM
     Dosage: 3 MG,QD
     Route: 048
     Dates: start: 20180313
  7. PALONOSETRON. [Concomitant]
     Active Substance: PALONOSETRON HYDROCHLORIDE
     Indication: PROPHYLAXIS
     Dosage: UNK UNK,QD
     Route: 042
     Dates: start: 20180313
  8. METAMIZOLE [Concomitant]
     Active Substance: METAMIZOLE
     Indication: ANALGESIC THERAPY
     Dosage: 4000 MG,QD
     Route: 042
     Dates: start: 20180313
  9. LIDOCAINE;PRILOCAINE [Concomitant]
     Dosage: UNK UNK,UNK
     Route: 065
     Dates: start: 20180313
  10. ESOMEPRAZOLE [Concomitant]
     Active Substance: ESOMEPRAZOLE
     Indication: NEOPLASM
     Dosage: 80 MG,QD
     Route: 042
     Dates: start: 20180223
  11. CALCIUM FOLINATE [Concomitant]
     Active Substance: LEUCOVORIN CALCIUM
     Indication: NEOPLASM
     Dosage: 616 MG,QD
     Route: 042
     Dates: start: 20180223
  12. ELOXATIN [Suspect]
     Active Substance: OXALIPLATIN
     Indication: NEOPLASM
     Dosage: 131 MG,1X
     Route: 042
     Dates: start: 20180223, end: 20180223
  13. ELOXATIN [Suspect]
     Active Substance: OXALIPLATIN
     Dosage: 131 UNK
     Route: 042
     Dates: start: 20180404, end: 20180404
  14. CREON [Concomitant]
     Active Substance: PANCRELIPASE AMYLASE\PANCRELIPASE LIPASE\PANCRELIPASE PROTEASE
     Dosage: 3 DF,QD
     Route: 048
     Dates: start: 20180313
  15. DRAMAMINE [Concomitant]
     Active Substance: DIMENHYDRINATE
     Indication: PROPHYLAXIS
     Dosage: 10 ML,UNK
     Route: 065
     Dates: start: 20180313
  16. IMOSEC [Concomitant]
     Active Substance: LOPERAMIDE
     Indication: NEOPLASM
     Dosage: 12 MG,QD
     Route: 048
     Dates: start: 20180313

REACTIONS (12)
  - Neutropenia [Recovering/Resolving]
  - Red blood cell count decreased [Recovering/Resolving]
  - Mean cell volume [Recovering/Resolving]
  - Haemoglobin decreased [Recovering/Resolving]
  - Mean cell volume [Recovering/Resolving]
  - Haemoglobin decreased [Recovering/Resolving]
  - Haematocrit decreased [Recovering/Resolving]
  - White blood cell disorder [Recovering/Resolving]
  - Neutrophil count decreased [Recovering/Resolving]
  - Eosinophil count [Recovering/Resolving]
  - Haematocrit decreased [Recovering/Resolving]
  - Neutrophil count decreased [Recovering/Resolving]

NARRATIVE: CASE EVENT DATE: 20180313
